FAERS Safety Report 4657624-6 (Version None)
Quarter: 2005Q2

REPORT INFORMATION
  Report Type: 
  Country: None (occurrence: None)
  Receive Date: 20050510
  Receipt Date: 20050428
  Transmission Date: 20051028
  Serious: Yes (Other)
  Sender: FDA-Public Use
  Company Number: US-AMGEN-US129623

PATIENT
  Sex: Male

DRUGS (9)
  1. ARANESP [Suspect]
     Indication: ANAEMIA
     Route: 058
     Dates: start: 20050112, end: 20050112
  2. PROCRIT [Suspect]
     Indication: ANAEMIA
     Route: 058
     Dates: start: 20050126, end: 20050224
  3. COMBIVIR [Concomitant]
  4. GLIPIZIDE [Concomitant]
  5. IBUPROFEN [Concomitant]
  6. METFORMIN [Concomitant]
  7. PEGASYS [Concomitant]
     Route: 058
  8. RIBAVIRIN [Concomitant]
  9. SUSTIVA [Concomitant]

REACTIONS (15)
  - ANGIONEUROTIC OEDEMA [None]
  - DYSPNOEA [None]
  - EOSINOPHIL COUNT INCREASED [None]
  - EOSINOPHIL PERCENTAGE INCREASED [None]
  - HYPERSENSITIVITY [None]
  - PHARYNGEAL OEDEMA [None]
  - PRURITUS [None]
  - RASH [None]
  - RASH ERYTHEMATOUS [None]
  - RASH SCALY [None]
  - SKIN DEPIGMENTATION [None]
  - SWELLING FACE [None]
  - SWOLLEN TONGUE [None]
  - URTICARIA [None]
  - VITILIGO [None]
